FAERS Safety Report 25075685 (Version 2)
Quarter: 2025Q1

REPORT INFORMATION
  Report Type: Report from Study
  Country: CO (occurrence: CO)
  Receive Date: 20250313
  Receipt Date: 20250325
  Transmission Date: 20250409
  Serious: Yes (Other)
  Sender: AMICUS THERAPEUTICS
  Company Number: CO-AMICUS THERAPEUTICS, INC.-AMI_3566

PATIENT
  Age: 60 Year
  Sex: Female
  Weight: 60 kg

DRUGS (4)
  1. GALAFOLD [Suspect]
     Active Substance: MIGALASTAT HYDROCHLORIDE
     Indication: Fabry^s disease
     Dosage: 123 MILLIGRAM, QOD (123 MG/48 HOURS)
     Route: 048
     Dates: start: 20210201, end: 20250303
  2. Diamicron [Concomitant]
     Indication: Type 2 diabetes mellitus
     Dosage: 60 MILLIGRAM, QD (EVERY 24 HOURS)
     Route: 048
     Dates: start: 20230417
  3. ATORVASTATIN [Concomitant]
     Active Substance: ATORVASTATIN
     Indication: Hypercholesterolaemia
     Dosage: 80 MILLIGRAM, QD (EVERY 24 HOURS)
     Route: 048
     Dates: start: 20190110
  4. LOSARTAN [Concomitant]
     Active Substance: LOSARTAN
     Indication: Hypertension
     Dosage: 25 MILLIGRAM, QD (EVERY 24 HOURS)
     Route: 048
     Dates: start: 20190613

REACTIONS (5)
  - Erosive oesophagitis [Not Recovered/Not Resolved]
  - Condition aggravated [Not Recovered/Not Resolved]
  - Pain in extremity [Not Recovered/Not Resolved]
  - Paraesthesia [Recovering/Resolving]
  - Headache [Not Recovered/Not Resolved]

NARRATIVE: CASE EVENT DATE: 20210201
